FAERS Safety Report 8282652-1 (Version None)
Quarter: 2012Q2

REPORT INFORMATION
  Report Type: 
  Country: None (occurrence: None)
  Receive Date: 20120413
  Receipt Date: 20120406
  Transmission Date: 20120825
  Serious: Yes (Other)
  Sender: FDA-Public Use
  Company Number: US-PFIZER INC-2012087545

PATIENT
  Age: 82 Year
  Sex: Male
  Weight: 76.19 kg

DRUGS (2)
  1. XANAX [Suspect]
     Indication: ANXIETY
     Dosage: UNK
     Route: 048
     Dates: start: 19850101
  2. XANAX [Suspect]
     Dosage: .375 MG, 3X/DAY
     Route: 048

REACTIONS (2)
  - MEMORY IMPAIRMENT [None]
  - DRUG DEPENDENCE [None]
